FAERS Safety Report 7141906-2 (Version None)
Quarter: 2010Q4

REPORT INFORMATION
  Report Type: 
  Country: None (occurrence: None)
  Receive Date: 20101117
  Receipt Date: 20100715
  Transmission Date: 20110411
  Serious: No
  Sender: FDA-Public Use
  Company Number: WAES 1007USA02618

PATIENT
  Sex: Male

DRUGS (1)
  1. ISENTRESS [Suspect]
     Dosage: 400 MG/BID/OPHT
     Route: 047

REACTIONS (1)
  - HEPATIC ENZYME INCREASED [None]
